FAERS Safety Report 9859233 (Version 4)
Quarter: 2014Q2

REPORT INFORMATION
  Report Type: Report from Study
  Country: AU (occurrence: AU)
  Receive Date: 20140131
  Receipt Date: 20140502
  Transmission Date: 20141212
  Serious: Yes (Other)
  Sender: FDA-Public Use
  Company Number: AU-BRISTOL-MYERS SQUIBB COMPANY-19526680

PATIENT
  Age: 79 Year
  Sex: Female

DRUGS (7)
  1. ORENCIA [Suspect]
     Indication: RHEUMATOID ARTHRITIS
     Dosage: LAST INF:02SEP13; 250MG,Q4WEEKS FOR 2 DOSES
     Route: 042
     Dates: start: 20120907, end: 20140125
  2. TRITACE [Concomitant]
  3. NOTEN [Concomitant]
  4. PARIET [Concomitant]
  5. CADUET [Concomitant]
  6. FISH OIL [Concomitant]
  7. PANADOL [Concomitant]

REACTIONS (8)
  - Paraesthesia oral [Recovered/Resolved]
  - Hypoaesthesia oral [Unknown]
  - Dry eye [Unknown]
  - Fatigue [Unknown]
  - Feeling cold [Unknown]
  - Ear swelling [Unknown]
  - Swelling face [Unknown]
  - Blister [Unknown]
